FAERS Safety Report 23715406 (Version 1)
Quarter: 2024Q2

REPORT INFORMATION
  Report Type: Report from Study
  Country: US (occurrence: US)
  Receive Date: 20240407
  Receipt Date: 20240407
  Transmission Date: 20240716
  Serious: Yes (Other)
  Sender: FDA-Public Use
  Company Number: US-ABBVIE-5702832

PATIENT
  Sex: Male

DRUGS (1)
  1. RINVOQ [Suspect]
     Active Substance: UPADACITINIB
     Indication: Product used for unknown indication
     Route: 048
     Dates: start: 20230901

REACTIONS (6)
  - Arthralgia [Recovering/Resolving]
  - Fall [Recovering/Resolving]
  - Craniofacial fracture [Recovering/Resolving]
  - Confusional state [Unknown]
  - Brain fog [Unknown]
  - Joint injury [Recovering/Resolving]
